FAERS Safety Report 23940328 (Version 2)
Quarter: 2024Q2

REPORT INFORMATION
  Report Type: Spontaneous
  Country: US (occurrence: US)
  Receive Date: 20240605
  Receipt Date: 20240607
  Transmission Date: 20240716
  Serious: Yes (Other)
  Sender: FDA-Public Use
  Company Number: US-ORGANON-O2406USA000143

PATIENT
  Sex: Female

DRUGS (1)
  1. NEXPLANON [Suspect]
     Active Substance: ETONOGESTREL
     Dosage: 1 IMPLANT
     Route: 059
     Dates: start: 20240423

REACTIONS (5)
  - Device expulsion [Not Recovered/Not Resolved]
  - Implant site pain [Not Recovered/Not Resolved]
  - Injection site mass [Not Recovered/Not Resolved]
  - Burning sensation [Not Recovered/Not Resolved]
  - Discomfort [Not Recovered/Not Resolved]

NARRATIVE: CASE EVENT DATE: 20240101
